FAERS Safety Report 22181251 (Version 1)
Quarter: 2023Q2

REPORT INFORMATION
  Report Type: Spontaneous
  Country: US (occurrence: US)
  Receive Date: 20230406
  Receipt Date: 20230406
  Transmission Date: 20230721
  Serious: No
  Sender: FDA-Public Use
  Company Number: US-VERTEX PHARMACEUTICALS-2023-004958

PATIENT
  Age: 9 Year
  Sex: Female
  Weight: 33 kg

DRUGS (3)
  1. TRIKAFTA [Suspect]
     Active Substance: ELEXACAFTOR\IVACAFTOR\TEZACAFTOR
     Indication: Cystic fibrosis
     Dosage: UNKNOWN DOSE
     Route: 048
  2. TRIKAFTA [Suspect]
     Active Substance: ELEXACAFTOR\IVACAFTOR\TEZACAFTOR
     Dosage: UNKNOWN HIGHER DOSE
     Route: 048
     Dates: start: 20220622, end: 202207
  3. TRIKAFTA [Suspect]
     Active Substance: ELEXACAFTOR\IVACAFTOR\TEZACAFTOR
     Dosage: ADJUSTED DOSE OF 1 ORANGE TABLET DAILY (100MG ELEXA /50 MG TEZA/75 MG IVA)
     Route: 048
     Dates: start: 2022

REACTIONS (5)
  - Tic [Recovering/Resolving]
  - Eye movement disorder [Recovered/Resolved]
  - Personality change [Unknown]
  - Stress [Unknown]
  - Dizziness [Recovered/Resolved]

NARRATIVE: CASE EVENT DATE: 20220101
